FAERS Safety Report 16347796 (Version 1)
Quarter: 2019Q2

REPORT INFORMATION
  Report Type: Spontaneous
  Country: FR (occurrence: FR)
  Receive Date: 20190523
  Receipt Date: 20190523
  Transmission Date: 20190711
  Serious: Yes (Hospitalization)
  Sender: FDA-Public Use
  Company Number: FR-TEVA-2019-FR-1052462

PATIENT
  Age: 8 Year
  Sex: Female
  Weight: 31 kg

DRUGS (2)
  1. OXYBUTYNINE [Suspect]
     Active Substance: OXYBUTYNIN CHLORIDE
     Indication: MICTURITION DISORDER
     Dosage: 7.5 MG PER 1 DAY
     Route: 048
     Dates: end: 20190217
  2. ACTISOUFRE [Suspect]
     Active Substance: SACCHAROMYCES CEREVISIAE\SODIUM SULFATE
     Indication: SINUSITIS
     Dosage: 3 DF PER 1 DAY
     Route: 045
     Dates: start: 20190221, end: 20190306

REACTIONS (3)
  - Vomiting [Recovered/Resolved]
  - Behaviour disorder [Recovered/Resolved]
  - Cerebral vasoconstriction [Recovered/Resolved]

NARRATIVE: CASE EVENT DATE: 20190228
